FAERS Safety Report 6271391-4 (Version None)
Quarter: 2009Q3

REPORT INFORMATION
  Report Type: 
  Country: None (occurrence: None)
  Receive Date: 20090717
  Receipt Date: 20090708
  Transmission Date: 20100115
  Serious: Yes (Other)
  Sender: FDA-Public Use
  Company Number: US-ROCHE-642924

PATIENT
  Age: 55 Year
  Sex: Female

DRUGS (2)
  1. BONIVA [Suspect]
     Indication: OSTEOPOROSIS
     Route: 048
  2. BONIVA [Suspect]
     Dosage: FREQUENCY: Q 3 MONTHS (EVERY THREE MONTHS)
     Route: 042

REACTIONS (1)
  - OSTEONECROSIS [None]
